FAERS Safety Report 9477417 (Version 2)
Quarter: 2013Q3

REPORT INFORMATION
  Report Type: Report from Study
  Country: US (occurrence: US)
  Receive Date: 20130826
  Receipt Date: 20130826
  Transmission Date: 20140515
  Serious: Yes (Hospitalization)
  Sender: FDA-Public Use
  Company Number: US-B.I. PHARMACEUTICALS,INC./RIDGEFIELD-2013-BI-24709BI

PATIENT
  Age: 89 Year
  Sex: Female
  Weight: 51 kg

DRUGS (6)
  1. PRADAXA [Suspect]
     Indication: ATRIAL FIBRILLATION
     Dosage: 300 MG
     Route: 048
     Dates: start: 20130409, end: 20130514
  2. DABIGATRAN [Suspect]
     Indication: ANTICOAGULANT THERAPY
     Dosage: 300 MG
     Route: 048
     Dates: start: 20130411, end: 20130514
  3. ATENOLOL [Concomitant]
     Indication: HYPERTENSION
     Dosage: 100 MG
     Route: 048
     Dates: start: 2007
  4. EXELON [Concomitant]
     Indication: DEMENTIA ALZHEIMER^S TYPE
     Dosage: 9.5 MG
     Route: 062
     Dates: start: 2009
  5. LANTUS [Concomitant]
     Indication: DIABETES MELLITUS
     Dosage: 20 U
     Route: 058
     Dates: start: 2011
  6. NAMENDA [Concomitant]
     Indication: DEMENTIA ALZHEIMER^S TYPE
     Dosage: 20 G
     Route: 048
     Dates: start: 2012

REACTIONS (1)
  - Gastrointestinal haemorrhage [Recovered/Resolved]
